FAERS Safety Report 4561174-5 (Version None)
Quarter: 2005Q1

REPORT INFORMATION
  Report Type: 
  Country: None (occurrence: None)
  Receive Date: 20050126
  Receipt Date: 20050118
  Transmission Date: 20050727
  Serious: Yes (Hospitalization)
  Sender: FDA-Public Use
  Company Number: 200510466GDDC

PATIENT
  Age: 53 Year
  Sex: Male

DRUGS (10)
  1. FLUDEX [Suspect]
     Indication: ESSENTIAL HYPERTENSION
     Dosage: DOSE: 1 DOSAGE FORM
     Route: 048
     Dates: end: 20041214
  2. COZAAR [Suspect]
     Indication: ESSENTIAL HYPERTENSION
     Dosage: DOSE: 1 DOSAGE FORM
     Route: 048
     Dates: end: 20041214
  3. GLUCOPHAGE [Concomitant]
     Dates: end: 20041214
  4. AMAREL [Concomitant]
     Dates: end: 20041214
  5. MYDRIATICUM ^ROCHE^ [Concomitant]
     Dates: end: 20041214
  6. TOBRADEX [Concomitant]
     Dates: end: 20041214
  7. PROPOFAN                           /00765201/ [Concomitant]
     Dates: start: 20041207, end: 20041210
  8. OFLOXACIN [Concomitant]
     Dates: start: 20041207, end: 20041210
  9. XANAX [Concomitant]
  10. ZOPICLONE [Concomitant]

REACTIONS (6)
  - CELLS IN URINE [None]
  - DIALYSIS [None]
  - DRUG INTERACTION [None]
  - RED BLOOD CELLS URINE [None]
  - RENAL FAILURE ACUTE [None]
  - VOMITING [None]
